FAERS Safety Report 24814196 (Version 1)
Quarter: 2025Q1

REPORT INFORMATION
  Report Type: Spontaneous
  Country: US (occurrence: US)
  Receive Date: 20250107
  Receipt Date: 20250107
  Transmission Date: 20250408
  Serious: Yes (Hospitalization, Other)
  Sender: ALEMBIC
  Company Number: US-ALEMBIC PHARMACUETICALS LIMITED-2024SCAL001922

PATIENT

DRUGS (1)
  1. TESTOSTERONE [Suspect]
     Active Substance: TESTOSTERONE
     Indication: Product used for unknown indication
     Route: 065

REACTIONS (13)
  - Hepatocellular carcinoma [Unknown]
  - Abdominal pain [Unknown]
  - Nausea [Unknown]
  - Chills [Unknown]
  - Night sweats [Unknown]
  - Abdominal distension [Unknown]
  - Myalgia [Unknown]
  - Haemoglobin decreased [Unknown]
  - Alanine aminotransferase increased [Unknown]
  - Aspartate aminotransferase increased [Unknown]
  - International normalised ratio increased [Unknown]
  - Abdominal tenderness [Unknown]
  - Hepatic adenoma [Unknown]
